FAERS Safety Report 5542988-1 (Version None)
Quarter: 2007Q4

REPORT INFORMATION
  Report Type: 
  Country: None (occurrence: None)
  Receive Date: 20071210
  Receipt Date: 20071128
  Transmission Date: 20080405
  Serious: Yes (Hospitalization)
  Sender: FDA-Public Use
  Company Number: ZW-GILEAD-2007-0014469

PATIENT
  Age: 34 Year
  Sex: Female
  Weight: 47.6 kg

DRUGS (2)
  1. EMTRICITABINE/TENOFOVIR DISOPROXIL FUMARATE [Suspect]
     Indication: HIV INFECTION
     Route: 048
     Dates: start: 20071105
  2. ALUVIA [Suspect]
     Indication: HIV INFECTION
     Route: 048
     Dates: start: 20071105

REACTIONS (1)
  - GASTROENTERITIS [None]
